FAERS Safety Report 22048094 (Version 1)
Quarter: 2023Q1

REPORT INFORMATION
  Report Type: Spontaneous
  Country: AT (occurrence: AT)
  Receive Date: 20230301
  Receipt Date: 20230301
  Transmission Date: 20230417
  Serious: Yes (Other)
  Sender: FDA-Public Use
  Company Number: None

PATIENT
  Age: 65 Year
  Sex: Female

DRUGS (1)
  1. CIPROFLOXACIN [Suspect]
     Active Substance: CIPROFLOXACIN
     Indication: Urinary tract infection
     Dosage: ACCORDING TO TECHNICAL INFORMATION,
     Dates: start: 20220901

REACTIONS (3)
  - Hepatitis toxic [Unknown]
  - Hepatic enzyme increased [Unknown]
  - Jaundice [Unknown]

NARRATIVE: CASE EVENT DATE: 20220901
